FAERS Safety Report 13162197 (Version 5)
Quarter: 2017Q2

REPORT INFORMATION
  Report Type: Spontaneous
  Country: US (occurrence: US)
  Receive Date: 20170130
  Receipt Date: 20170609
  Transmission Date: 20170830
  Serious: Yes (Death)
  Sender: FDA-Public Use
  Company Number: US-PFIZER INC-2017037010

PATIENT
  Age: 71 Year
  Sex: Male
  Weight: 83.91 kg

DRUGS (6)
  1. INLYTA [Suspect]
     Active Substance: AXITINIB
     Indication: METASTATIC RENAL CELL CARCINOMA
     Dosage: 3 MG, TWICE A DAY (1 MG TABLETS, 3 TABLETS IN THE MORNING AND EVENING)
     Route: 048
     Dates: start: 201502, end: 20170124
  2. INLYTA [Suspect]
     Active Substance: AXITINIB
     Dosage: 3 MG, TWICE DAILY (1MG, 3 TABLETS TWICE DAILY)
     Route: 048
  3. INLYTA [Suspect]
     Active Substance: AXITINIB
     Dosage: 15 MG, TWICE A DAY (5 MG, 3 TABLETS, TWICE A DAY)
     Route: 048
     Dates: start: 201301
  4. INLYTA [Suspect]
     Active Substance: AXITINIB
     Dosage: 5 MG, TWICE A DAY
     Route: 048
  5. PREVACID [Concomitant]
     Active Substance: LANSOPRAZOLE
     Indication: GASTROOESOPHAGEAL REFLUX DISEASE
     Dosage: 30 MG, ONCE A DAY
     Route: 048
  6. CIALIS [Concomitant]
     Active Substance: TADALAFIL
     Indication: BENIGN PROSTATIC HYPERPLASIA
     Dosage: 1 MG, ONCE A DAY
     Route: 048

REACTIONS (18)
  - Neoplasm progression [Fatal]
  - Product use in unapproved indication [Unknown]
  - Balance disorder [Recovering/Resolving]
  - Paraesthesia [Not Recovered/Not Resolved]
  - Vision blurred [Not Recovered/Not Resolved]
  - Skin sensitisation [Not Recovered/Not Resolved]
  - Second primary malignancy [Fatal]
  - Glioblastoma [Fatal]
  - Hypoaesthesia [Not Recovered/Not Resolved]
  - Dizziness [Recovering/Resolving]
  - Ear pruritus [Not Recovered/Not Resolved]
  - Visual impairment [Unknown]
  - Condition aggravated [Not Recovered/Not Resolved]
  - Eye pruritus [Not Recovered/Not Resolved]
  - Diarrhoea [Not Recovered/Not Resolved]
  - Diplopia [Not Recovered/Not Resolved]
  - Balance disorder [Unknown]
  - Gait disturbance [Not Recovered/Not Resolved]

NARRATIVE: CASE EVENT DATE: 201701
